FAERS Safety Report 6379630-6 (Version None)
Quarter: 2009Q3

REPORT INFORMATION
  Report Type: 
  Country: None (occurrence: None)
  Receive Date: 20090924
  Receipt Date: 20090924
  Transmission Date: 20100115
  Serious: Yes (Hospitalization)
  Sender: FDA-Public Use
  Company Number: None

PATIENT
  Sex: Female
  Weight: 80 kg

DRUGS (2)
  1. CARBOPLATIN [Suspect]
     Dosage: 415 MG
  2. TAXOL [Suspect]
     Dosage: 315 MG

REACTIONS (3)
  - CYSTITIS HAEMORRHAGIC [None]
  - HAEMATURIA [None]
  - URINARY TRACT INFECTION [None]
